FAERS Safety Report 16617526 (Version 1)
Quarter: 2019Q3

REPORT INFORMATION
  Report Type: Spontaneous
  Country: CH (occurrence: CH)
  Receive Date: 20190723
  Receipt Date: 20190723
  Transmission Date: 20191004
  Serious: Yes (Life-Threatening, Hospitalization)
  Sender: FDA-Public Use
  Company Number: CH-MYLANLABS-2019M1068110

PATIENT
  Age: 49 Year
  Sex: Male

DRUGS (13)
  1. EPINEPHRINE. [Suspect]
     Active Substance: EPINEPHRINE
     Indication: HEART RATE DECREASED
  2. TORECAN [Concomitant]
     Active Substance: THIETHYLPERAZINE MALATE
     Indication: NAUSEA
     Dosage: 5 MILLIGRAM
     Route: 042
  3. TORECAN [Concomitant]
     Active Substance: THIETHYLPERAZINE MALATE
     Indication: VOMITING
  4. IMIPENEM [Concomitant]
     Active Substance: IMIPENEM
     Indication: INFECTION
     Route: 042
  5. LORAZEPAM. [Concomitant]
     Active Substance: LORAZEPAM
     Indication: PRODUCT USED FOR UNKNOWN INDICATION
     Dosage: 1 MILLIGRAM
     Route: 048
  6. CIPROFLOXACIN. [Concomitant]
     Active Substance: CIPROFLOXACIN
     Indication: GASTROENTERITIS
     Dosage: 500 MILLIGRAM
     Route: 048
  7. METRONIDAZOLE. [Concomitant]
     Active Substance: METRONIDAZOLE
     Indication: GASTROENTERITIS
     Dosage: 500 MILLIGRAM
     Route: 048
  8. GLUCOSE [Concomitant]
     Active Substance: DEXTROSE
     Indication: PRODUCT USED FOR UNKNOWN INDICATION
     Route: 050
  9. LOPERAMIDE [Concomitant]
     Active Substance: LOPERAMIDE
     Indication: DIARRHOEA
     Route: 048
  10. BUSCOPAN [Concomitant]
     Active Substance: BUTYLSCOPOLAMINE BROMIDE
     Indication: ABDOMINAL PAIN
     Route: 042
  11. LACTATED RINGERS SOLUTION [Concomitant]
     Active Substance: CALCIUM CHLORIDE\POTASSIUM CHLORIDE\SODIUM CHLORIDE\SODIUM LACTATE
     Indication: GASTROENTERITIS
     Dosage: UNK
     Route: 065
  12. PARACETAMOL [Concomitant]
     Active Substance: ACETAMINOPHEN
     Indication: ABDOMINAL PAIN
     Dosage: 1 GRAM
     Route: 042
  13. EPINEPHRINE. [Suspect]
     Active Substance: EPINEPHRINE
     Indication: RESPIRATORY ARREST
     Dosage: 1 MILLIGRAM
     Route: 040

REACTIONS (1)
  - Drug ineffective [Unknown]
